FAERS Safety Report 17197607 (Version 2)
Quarter: 2020Q1

REPORT INFORMATION
  Report Type: Spontaneous
  Country: JP (occurrence: JP)
  Receive Date: 20191224
  Receipt Date: 20200210
  Transmission Date: 20200409
  Serious: Yes (Other)
  Sender: FDA-Public Use
  Company Number: JP-GILEAD-2019-0443530

PATIENT
  Age: 3 Decade
  Sex: Female

DRUGS (2)
  1. RALTEGRAVIR. [Concomitant]
     Active Substance: RALTEGRAVIR
     Indication: HIV INFECTION
  2. EMTRICITABINE/TENOFOVIR ALAFENAMIDE [Suspect]
     Active Substance: EMTRICITABINE\TENOFOVIR
     Indication: HIV INFECTION
     Dosage: UNK
     Route: 065

REACTIONS (4)
  - Hypergammaglobulinaemia [Unknown]
  - Warm type haemolytic anaemia [Recovered/Resolved]
  - Autoimmune thyroiditis [Unknown]
  - Autoimmune hepatitis [Unknown]
